FAERS Safety Report 23963485 (Version 1)
Quarter: 2024Q2

REPORT INFORMATION
  Report Type: Spontaneous
  Country: CH (occurrence: CH)
  Receive Date: 20240611
  Receipt Date: 20240611
  Transmission Date: 20240716
  Serious: Yes (Other)
  Sender: FDA-Public Use
  Company Number: CH-009507513-2406CHE003044

PATIENT
  Sex: Male

DRUGS (1)
  1. PEMBROLIZUMAB [Suspect]
     Active Substance: PEMBROLIZUMAB
     Indication: Transitional cell carcinoma urethra
     Dosage: UNK
     Dates: start: 2020, end: 202112

REACTIONS (1)
  - Transitional cell carcinoma urethra [Unknown]

NARRATIVE: CASE EVENT DATE: 20240401
